FAERS Safety Report 8915990 (Version 3)
Quarter: 2013Q1

REPORT INFORMATION
  Report Type: Spontaneous
  Country: US (occurrence: US)
  Receive Date: 20121119
  Receipt Date: 20130130
  Transmission Date: 20140127
  Serious: Yes (Life-Threatening, Disabling)
  Sender: FDA-Public Use
  Company Number: US-GLAXOSMITHKLINE-A1001297A

PATIENT
  Age: 53 Year
  Sex: Female
  Weight: 75 kg

DRUGS (5)
  1. POTIGA [Suspect]
     Indication: CONVULSION
     Dosage: 50MG THREE TIMES PER DAY
     Route: 048
     Dates: start: 20121022
  2. DIURETIC [Suspect]
     Indication: PRODUCT USED FOR UNKNOWN INDICATION
     Route: 065
  3. TOPAMAX [Concomitant]
  4. LAMICTAL [Concomitant]
     Dosage: 100MG TWICE PER DAY
  5. LOPRESSOR [Concomitant]

REACTIONS (7)
  - Urinary retention [Recovered/Resolved]
  - Hallucination [Recovered/Resolved]
  - Bilirubin urine [Recovered/Resolved]
  - Dysuria [Recovered/Resolved]
  - Urinary hesitation [Recovering/Resolving]
  - Burning sensation [Recovering/Resolving]
  - Pollakiuria [Recovered/Resolved]
